FAERS Safety Report 19436669 (Version 2)
Quarter: 2021Q3

REPORT INFORMATION
  Report Type: Spontaneous
  Country: ES (occurrence: ES)
  Receive Date: 20210618
  Receipt Date: 20210906
  Transmission Date: 20211014
  Serious: Yes (Other)
  Sender: FDA-Public Use
  Company Number: ES-SA-2021SA197783

PATIENT
  Sex: Male
  Weight: 83 kg

DRUGS (1)
  1. LANTUS [Suspect]
     Active Substance: INSULIN GLARGINE
     Indication: TYPE 2 DIABETES MELLITUS
     Dosage: 10?12 IU, QD
     Route: 058
     Dates: start: 2011

REACTIONS (9)
  - Localised infection [Recovered/Resolved]
  - Pharyngitis [Recovered/Resolved]
  - Blood glucose fluctuation [Not Recovered/Not Resolved]
  - Skin ulcer [Recovering/Resolving]
  - Diabetes mellitus inadequate control [Recovered/Resolved]
  - Blood glucose increased [Recovered/Resolved]
  - Unevaluable event [Unknown]
  - Pneumonia [Recovered/Resolved]
  - Hyperkeratosis [Recovered/Resolved]
